FAERS Safety Report 18781651 (Version 1)
Quarter: 2021Q1

REPORT INFORMATION
  Report Type: Spontaneous
  Country: US (occurrence: US)
  Receive Date: 20210122
  Receipt Date: 20210122
  Transmission Date: 20210419
  Serious: Yes (Hospitalization)
  Sender: FDA-Public Use
  Company Number: None

PATIENT
  Age: 61 Year
  Sex: Female
  Weight: 60.3 kg

DRUGS (5)
  1. ADRIAMYCIN [Suspect]
     Active Substance: DOXORUBICIN HYDROCHLORIDE
  2. TYLENOL [Concomitant]
     Active Substance: ACETAMINOPHEN
  3. MEDI 4736 [Suspect]
     Active Substance: DURVALUMAB
     Indication: BREAST CANCER
     Route: 042
     Dates: start: 20171005, end: 20180209
  4. ATIVAN [Concomitant]
     Active Substance: LORAZEPAM
  5. CYTOXAN [Suspect]
     Active Substance: CYCLOPHOSPHAMIDE
     Indication: BREAST CANCER
     Dates: start: 20171228

REACTIONS (6)
  - Dehydration [None]
  - Dyspnoea [None]
  - Neutrophil count decreased [None]
  - Fatigue [None]
  - White blood cell count decreased [None]
  - Decreased appetite [None]

NARRATIVE: CASE EVENT DATE: 20180617
